FAERS Safety Report 20825455 (Version 2)
Quarter: 2022Q2

REPORT INFORMATION
  Report Type: Spontaneous
  Country: US (occurrence: None)
  Receive Date: 20220513
  Receipt Date: 20220520
  Transmission Date: 20220720
  Serious: No
  Sender: FDA-Public Use
  Company Number: 2022A175492

PATIENT
  Age: 81 Year
  Sex: Male

DRUGS (1)
  1. SYMBICORT [Suspect]
     Active Substance: BUDESONIDE\FORMOTEROL FUMARATE DIHYDRATE
     Indication: Asthma
     Dosage: 160/4.5, TWO PUFFS, TWO TIMES A DAY
     Route: 055
     Dates: start: 2022

REACTIONS (4)
  - Fatigue [Unknown]
  - Dysphonia [Unknown]
  - Wrong technique in device usage process [Unknown]
  - Device defective [Unknown]

NARRATIVE: CASE EVENT DATE: 20220101
